FAERS Safety Report 17143397 (Version 1)
Quarter: 2019Q4

REPORT INFORMATION
  Report Type: Spontaneous
  Country: DE (occurrence: DE)
  Receive Date: 20191212
  Receipt Date: 20191212
  Transmission Date: 20200122
  Serious: Yes (Hospitalization)
  Sender: FDA-Public Use
  Company Number: DE-MYLANLABS-2019M1120403

PATIENT
  Age: 37 Year
  Sex: Female

DRUGS (3)
  1. FLUOXETINE [Suspect]
     Active Substance: FLUOXETINE HYDROCHLORIDE
     Indication: PRODUCT USED FOR UNKNOWN INDICATION
     Dosage: 30 MILLIGRAM
     Dates: start: 201811
  2. IBEROGAST [Concomitant]
     Active Substance: HERBALS
     Dosage: 20 GTT DROPS
     Route: 048
  3. OMEPRAZOL                          /00661201/ [Concomitant]
     Active Substance: OMEPRAZOLE
     Route: 048

REACTIONS (3)
  - Constipation [Recovering/Resolving]
  - Ileus [Recovering/Resolving]
  - Dolichocolon acquired [Recovering/Resolving]

NARRATIVE: CASE EVENT DATE: 201901
